FAERS Safety Report 9781042 (Version 1)
Quarter: 2013Q4

REPORT INFORMATION
  Report Type: Spontaneous
  Country: US (occurrence: None)
  Receive Date: 20131223
  Receipt Date: 20131223
  Transmission Date: 20140711
  Serious: Yes (Life-Threatening, Hospitalization, Disabling)
  Sender: FDA-Public Use
  Company Number: None

PATIENT
  Age: 25 Year
  Sex: Male
  Weight: 74.84 kg

DRUGS (1)
  1. DIAZEPAM [Suspect]
     Indication: SPINAL FRACTURE
     Dosage: VARYING    TAKEN BY MOUTH
     Route: 048
     Dates: start: 20120619, end: 20130912

REACTIONS (23)
  - Anxiety [None]
  - Tremor [None]
  - Paraesthesia [None]
  - Decreased appetite [None]
  - Abdominal distension [None]
  - Hypoaesthesia [None]
  - Hallucinations, mixed [None]
  - Gastrointestinal disorder [None]
  - Speech disorder [None]
  - Asthenia [None]
  - Palpitations [None]
  - Extrasystoles [None]
  - Oesophageal spasm [None]
  - Dizziness [None]
  - Vertigo [None]
  - Dry mouth [None]
  - Derealisation [None]
  - Concussion [None]
  - Tachycardia [None]
  - Tinnitus [None]
  - Thinking abnormal [None]
  - Paraesthesia [None]
  - Impaired work ability [None]
